FAERS Safety Report 11901258 (Version 1)
Quarter: 2016Q1

REPORT INFORMATION
  Report Type: Report from Study
  Country: US (occurrence: US)
  Receive Date: 20160108
  Receipt Date: 20160108
  Transmission Date: 20160526
  Serious: No
  Sender: FDA-Public Use
  Company Number: US-ABBVIE-15P-163-1439386-00

PATIENT
  Age: 60 Year
  Sex: Male
  Weight: 83.99 kg

DRUGS (1)
  1. VIEKIRA PAK [Suspect]
     Active Substance: DASABUVIR\OMBITASVIR\PARITAPREVIR\RITONAVIR
     Indication: HEPATITIS C
     Dosage: AM AND PM WITH FOOD, PER MANUFACTURERS PACKAGE DIRECTION
     Route: 048
     Dates: start: 20150629

REACTIONS (7)
  - Headache [Unknown]
  - Nausea [Unknown]
  - Lethargy [Unknown]
  - Asthenia [Recovering/Resolving]
  - Therapeutic response unexpected [Unknown]
  - Cough [Unknown]
  - Sluggishness [Recovering/Resolving]

NARRATIVE: CASE EVENT DATE: 20150803
